FAERS Safety Report 6432289-1 (Version None)
Quarter: 2009Q4

REPORT INFORMATION
  Report Type: 
  Country: None (occurrence: None)
  Receive Date: 20091105
  Receipt Date: 20091022
  Transmission Date: 20100525
  Serious: Yes (Other)
  Sender: FDA-Public Use
  Company Number: 1000009815

PATIENT
  Sex: Male

DRUGS (2)
  1. ESCITALOPRAM [Suspect]
     Indication: ANXIETY
     Dosage: 15 MG (15 MG, 1 IN 1 D), ORAL
     Route: 048
     Dates: start: 20060101
  2. RIVOTRIL (TABLETS) [Concomitant]

REACTIONS (2)
  - BLOOD OESTROGEN INCREASED [None]
  - GYNAECOMASTIA [None]
